FAERS Safety Report 8889247 (Version 1)
Quarter: 2012Q4

REPORT INFORMATION
  Report Type: 
  Country: US (occurrence: US)
  Receive Date: 20121106
  Receipt Date: 20121106
  Transmission Date: 20130627
  Serious: Yes (Other)
  Sender: FDA-Public Use
  Company Number: US-JNJFOC-20121016151

PATIENT
  Sex: Female
  Weight: 49.9 kg

DRUGS (5)
  1. TOPAMAX [Suspect]
     Indication: MIGRAINE PROPHYLAXIS
     Route: 048
  2. TOPAMAX [Suspect]
     Indication: MIGRAINE PROPHYLAXIS
     Route: 048
  3. TOPAMAX [Suspect]
     Indication: MIGRAINE PROPHYLAXIS
     Route: 048
  4. TOPAMAX [Suspect]
     Indication: MIGRAINE PROPHYLAXIS
     Route: 048
  5. RELPAX [Suspect]
     Indication: MIGRAINE
     Route: 065
     Dates: start: 2012

REACTIONS (3)
  - Muscle atrophy [Not Recovered/Not Resolved]
  - Dizziness [Recovered/Resolved]
  - Therapeutic response increased [Unknown]
